FAERS Safety Report 10918698 (Version 4)
Quarter: 2015Q3

REPORT INFORMATION
  Report Type: Spontaneous
  Country: US (occurrence: US)
  Receive Date: 20150316
  Receipt Date: 20150915
  Transmission Date: 20151125
  Serious: Yes (Death)
  Sender: FDA-Public Use
  Company Number: US-ASTELLAS-2015US004293

PATIENT
  Age: 84 Year
  Sex: Male

DRUGS (5)
  1. XTANDI [Suspect]
     Active Substance: ENZALUTAMIDE
     Dosage: 160 MG (4 CAPSULES), ONCE DAILY
     Route: 048
     Dates: start: 20150103
  2. LOSARTAN. [Concomitant]
     Active Substance: LOSARTAN
     Indication: PRODUCT USED FOR UNKNOWN INDICATION
     Dosage: UNK, UNKNOWN FREQ.
     Route: 065
  3. XTANDI [Suspect]
     Active Substance: ENZALUTAMIDE
     Dosage: 160 MG (4 CAPSULES), ONCE DAILY
     Route: 048
     Dates: start: 20150113
  4. XTANDI [Suspect]
     Active Substance: ENZALUTAMIDE
     Indication: PROSTATE CANCER
     Dosage: 160 MG (4 CAPSULES), ONCE DAILY
     Route: 048
     Dates: start: 20140603
  5. XTANDI [Suspect]
     Active Substance: ENZALUTAMIDE
     Route: 048
     Dates: start: 20141111

REACTIONS (13)
  - Asthenia [Unknown]
  - Restlessness [Unknown]
  - Dizziness [Unknown]
  - Drug ineffective [Unknown]
  - Chest discomfort [Unknown]
  - Initial insomnia [Unknown]
  - Fatigue [Unknown]
  - Gastrooesophageal reflux disease [Unknown]
  - Death [Fatal]
  - Abdominal pain upper [Unknown]
  - Insomnia [Unknown]
  - Back pain [Unknown]
  - Hypotension [Recovering/Resolving]

NARRATIVE: CASE EVENT DATE: 20150511
